FAERS Safety Report 6259829-X (Version None)
Quarter: 2009Q3

REPORT INFORMATION
  Report Type: 
  Country: None (occurrence: None)
  Receive Date: 20090706
  Receipt Date: 20090706
  Transmission Date: 20100115
  Serious: Yes (Hospitalization)
  Sender: FDA-Public Use
  Company Number: None

PATIENT
  Age: 51 Year
  Sex: Male
  Weight: 59.47 kg

DRUGS (1)
  1. ASPIRIN [Suspect]
     Dosage: 3250 MG TO 3900 MG DAILY PO
     Route: 048

REACTIONS (1)
  - GASTRIC ULCER PERFORATION [None]
